FAERS Safety Report 18480655 (Version 1)
Quarter: 2020Q4

REPORT INFORMATION
  Report Type: Spontaneous
  Country: US (occurrence: US)
  Receive Date: 20201109
  Receipt Date: 20201109
  Transmission Date: 20210114
  Serious: Yes (Other)
  Sender: FDA-Public Use
  Company Number: None

PATIENT
  Age: 74 Year
  Sex: Female
  Weight: 85.5 kg

DRUGS (13)
  1. SIMVASTATIN. [Concomitant]
     Active Substance: SIMVASTATIN
  2. NIFEDIPINE. [Concomitant]
     Active Substance: NIFEDIPINE
  3. CALCIUM WITH ADDITIONAL VITAMIN D [Concomitant]
  4. MIRALAX [Concomitant]
     Active Substance: POLYETHYLENE GLYCOL 3350
  5. TRELEGY ELLIPTA [Suspect]
     Active Substance: FLUTICASONE FUROATE\UMECLIDINIUM BROMIDE\VILANTEROL TRIFENATATE
     Indication: RESPIRATORY DISORDER
     Dosage: ?          OTHER STRENGTH:MCG;?
     Route: 055
     Dates: start: 20200917, end: 20201028
  6. COENZYME Q10 [Concomitant]
     Active Substance: DIETARY SUPPLEMENT\UBIDECARENONE
  7. MULTIVITAMIN [Concomitant]
     Active Substance: VITAMINS
  8. AREDS2 [Concomitant]
  9. FLONASE [Concomitant]
     Active Substance: FLUTICASONE PROPIONATE
  10. TRELEGY ELLIPTA [Suspect]
     Active Substance: FLUTICASONE FUROATE\UMECLIDINIUM BROMIDE\VILANTEROL TRIFENATATE
     Indication: ASTHMA
     Dosage: ?          OTHER STRENGTH:MCG;?
     Route: 055
     Dates: start: 20200917, end: 20201028
  11. HYDROXYZINE [Concomitant]
     Active Substance: HYDROXYZINE HYDROCHLORIDE
  12. BIOTIN [Concomitant]
     Active Substance: BIOTIN
  13. MONTELUKAST [Concomitant]
     Active Substance: MONTELUKAST SODIUM

REACTIONS (9)
  - Pain [None]
  - Urinary retention [None]
  - Cystitis [None]
  - Paranasal sinus discomfort [None]
  - Eye infection viral [None]
  - Eye pain [None]
  - Headache [None]
  - Epistaxis [None]
  - Therapy cessation [None]

NARRATIVE: CASE EVENT DATE: 20200917
